FAERS Safety Report 5303407-3 (Version None)
Quarter: 2007Q2

REPORT INFORMATION
  Report Type: 
  Country: None (occurrence: None)
  Receive Date: 20070420
  Receipt Date: 20070412
  Transmission Date: 20071010
  Serious: Yes (Hospitalization)
  Sender: FDA-Public Use
  Company Number: IT-ROCHE-492564

PATIENT
  Age: 13 Year
  Sex: Male

DRUGS (4)
  1. MYCOPHENOLATE MOFETIL [Suspect]
     Route: 048
     Dates: start: 20070123
  2. MYCOPHENOLATE MOFETIL [Suspect]
     Dosage: UID, QD.
     Route: 048
  3. FK506 [Suspect]
     Route: 048
     Dates: start: 20070123
  4. FK506 [Suspect]
     Route: 048

REACTIONS (2)
  - CYTOMEGALOVIRUS INFECTION [None]
  - ERYTHEMA INFECTIOSUM [None]
